FAERS Safety Report 21041774 (Version 1)
Quarter: 2022Q3

REPORT INFORMATION
  Report Type: Spontaneous
  Country: CN (occurrence: CN)
  Receive Date: 20220705
  Receipt Date: 20220705
  Transmission Date: 20221026
  Serious: Yes (Hospitalization)
  Sender: FDA-Public Use
  Company Number: CN-CHEPLA-2022005678

PATIENT
  Age: 41 Year
  Sex: Female

DRUGS (2)
  1. ORLISTAT [Suspect]
     Active Substance: ORLISTAT
     Indication: Weight decreased
     Dosage: 120MG (1 CAPSULE), BID; OVER ONE YEAR
     Dates: start: 2019
  2. ORLISTAT [Suspect]
     Active Substance: ORLISTAT
     Indication: Weight decreased
     Dosage: IRREGULAR USE
     Dates: start: 202008, end: 202012

REACTIONS (13)
  - Oxalosis [Recovering/Resolving]
  - Urate nephropathy [Unknown]
  - Generalised oedema [Recovering/Resolving]
  - Eyelid oedema [Unknown]
  - Oedema peripheral [Unknown]
  - Oedema peripheral [Recovering/Resolving]
  - Nephrotic syndrome [Unknown]
  - Acute kidney injury [Unknown]
  - Focal segmental glomerulosclerosis [Unknown]
  - Hepatic steatosis [Unknown]
  - Renal hamartoma [Unknown]
  - Nephrolithiasis [Unknown]
  - Product use in unapproved indication [Unknown]

NARRATIVE: CASE EVENT DATE: 20200101
